FAERS Safety Report 4714299-5 (Version None)
Quarter: 2005Q3

REPORT INFORMATION
  Report Type: 
  Country: None (occurrence: None)
  Receive Date: 20050714
  Receipt Date: 20050311
  Transmission Date: 20060218
  Serious: Yes (Hospitalization)
  Sender: FDA-Public Use
  Company Number: US-MERCK-0503USA02599

PATIENT
  Age: 57 Year
  Sex: Male
  Weight: 95 kg

DRUGS (6)
  1. VIOXX [Suspect]
     Route: 048
     Dates: start: 19990101, end: 20030101
  2. MAALOX [Concomitant]
     Indication: DYSPEPSIA
     Route: 065
  3. ZANTAC [Concomitant]
     Indication: DYSPEPSIA
     Route: 048
  4. ASPIRIN [Concomitant]
     Route: 048
  5. ACETAMINOPHEN AND HYDROCODONE BITARTRATE [Concomitant]
     Indication: PAIN
     Route: 048
  6. METHOCARBAMOL [Concomitant]
     Indication: MUSCLE SPASMS
     Route: 048

REACTIONS (11)
  - ABDOMINAL ABSCESS [None]
  - ACUTE MYOCARDIAL INFARCTION [None]
  - CHEST PAIN [None]
  - CORONARY ARTERY DISEASE [None]
  - DYSLIPIDAEMIA [None]
  - HYPERTENSION [None]
  - MUSCLE SPASMS [None]
  - ORTHOSTATIC HYPOTENSION [None]
  - PAIN IN EXTREMITY [None]
  - PAIN IN JAW [None]
  - SLEEP APNOEA SYNDROME [None]
